FAERS Safety Report 11878278 (Version 1)
Quarter: 2015Q4

REPORT INFORMATION
  Report Type: Spontaneous
  Country: AU (occurrence: AU)
  Receive Date: 20151230
  Receipt Date: 20151230
  Transmission Date: 20160305
  Serious: Yes (Other)
  Sender: FDA-Public Use
  Company Number: AU-SUN PHARMACEUTICAL INDUSTRIES LTD-2015RR-108655

PATIENT

DRUGS (4)
  1. ASENAPINE [Suspect]
     Active Substance: ASENAPINE
     Indication: SCHIZOPHRENIA
     Dosage: 15 MG, UNK
     Route: 065
  2. CLOZAPINE. [Suspect]
     Active Substance: CLOZAPINE
     Indication: SCHIZOPHRENIA
     Dosage: 400 MG, UNK
     Route: 065
  3. ASENAPINE [Suspect]
     Active Substance: ASENAPINE
     Indication: SCHIZOPHRENIA
     Dosage: 10 MG, UNK
     Route: 065
  4. QUETIAPINE [Suspect]
     Active Substance: QUETIAPINE
     Indication: SCHIZOPHRENIA
     Dosage: 50 MG, UNK
     Route: 065

REACTIONS (9)
  - Adverse drug reaction [Unknown]
  - Myocarditis [Recovered/Resolved]
  - Nausea [Unknown]
  - Decreased appetite [Unknown]
  - Rhinorrhoea [Unknown]
  - Diarrhoea [Unknown]
  - Oedema peripheral [Unknown]
  - Condition aggravated [Recovered/Resolved]
  - Congestive cardiomyopathy [None]
